FAERS Safety Report 6547256-7 (Version None)
Quarter: 2010Q1

REPORT INFORMATION
  Report Type: 
  Country: None (occurrence: None)
  Receive Date: 20100122
  Receipt Date: 20090505
  Transmission Date: 20100710
  Serious: No
  Sender: FDA-Public Use
  Company Number: US-BAUSCH-2009BL002143

PATIENT
  Age: 75 Year
  Sex: Male

DRUGS (3)
  1. ZYLET [Suspect]
     Indication: BLEPHARITIS
     Route: 047
     Dates: start: 20090504, end: 20090504
  2. ATENOLOL [Concomitant]
  3. PROCARDIA [Concomitant]

REACTIONS (1)
  - HEADACHE [None]
